FAERS Safety Report 5626702-7 (Version None)
Quarter: 2008Q1

REPORT INFORMATION
  Report Type: 
  Country: None (occurrence: None)
  Receive Date: 20080214
  Receipt Date: 20080204
  Transmission Date: 20080703
  Serious: Yes (Other)
  Sender: FDA-Public Use
  Company Number: US-ABBOTT-08P-163-0436859-00

PATIENT
  Sex: Male
  Weight: 57.658 kg

DRUGS (5)
  1. HUMIRA [Suspect]
     Indication: RHEUMATOID ARTHRITIS
     Route: 058
     Dates: start: 20050201, end: 20070201
  2. HUMIRA [Suspect]
     Route: 058
     Dates: start: 20070201, end: 20070701
  3. PROPACET 100 [Concomitant]
     Indication: PAIN MANAGEMENT
     Route: 048
     Dates: start: 20070901
  4. MULTIVITS [Concomitant]
     Indication: VITAMIN SUPPLEMENTATION
     Route: 048
  5. DOCUSATE SODIUM [Concomitant]
     Indication: PROPHYLAXIS
     Route: 048

REACTIONS (3)
  - DRUG INEFFECTIVE [None]
  - HIP ARTHROPLASTY [None]
  - INCISION SITE INFECTION [None]
